FAERS Safety Report 5959623-0 (Version None)
Quarter: 2008Q4

REPORT INFORMATION
  Report Type: 
  Country: None (occurrence: None)
  Receive Date: 20081106
  Receipt Date: 20080401
  Transmission Date: 20090506
  Serious: Yes (Other)
  Sender: FDA-Public Use
  Company Number: US200804000410

PATIENT
  Age: 10 Year
  Sex: Male

DRUGS (1)
  1. PROZAC [Suspect]
     Indication: ANXIETY
     Dosage: 50 MG UNK, UNK
     Dates: start: 20070101

REACTIONS (2)
  - CONVULSION [None]
  - PANIC ATTACK [None]
